FAERS Safety Report 20062367 (Version 3)
Quarter: 2022Q1

REPORT INFORMATION
  Report Type: Spontaneous
  Country: US (occurrence: US)
  Receive Date: 20211112
  Receipt Date: 20220128
  Transmission Date: 20220423
  Serious: Yes (Other)
  Sender: FDA-Public Use
  Company Number: US-BEH-2021137779

PATIENT
  Sex: Female

DRUGS (4)
  1. HIZENTRA [Suspect]
     Active Substance: HUMAN IMMUNOGLOBULIN G
     Indication: Immunodeficiency common variable
     Dosage: 10 GRAM, QW
     Route: 058
     Dates: start: 202102
  2. HIZENTRA [Suspect]
     Active Substance: HUMAN IMMUNOGLOBULIN G
     Dosage: 8 GRAM, QW
     Route: 058
     Dates: start: 202102
  3. HIZENTRA [Suspect]
     Active Substance: HUMAN IMMUNOGLOBULIN G
     Dosage: 10 GRAM, QW
     Route: 058
     Dates: start: 202102
  4. HIZENTRA [Suspect]
     Active Substance: HUMAN IMMUNOGLOBULIN G
     Dosage: 8 GRAM, QW
     Route: 058
     Dates: start: 202102

REACTIONS (15)
  - Pruritus [Unknown]
  - Recalled product administered [Unknown]
  - Swelling [Unknown]
  - Recalled product administered [Unknown]
  - Discomfort [Unknown]
  - Recalled product administered [Unknown]
  - Gastrointestinal bacterial overgrowth [Unknown]
  - Mast cell activation syndrome [Unknown]
  - Weight increased [Unknown]
  - Decreased appetite [Unknown]
  - Dyspnoea [Unknown]
  - Gastrointestinal disorder [Unknown]
  - Recalled product administered [Unknown]
  - Hypersensitivity [Unknown]
  - Recalled product administered [Unknown]
